FAERS Safety Report 9250418 (Version 1)
Quarter: 2013Q1

REPORT INFORMATION
  Report Type: Spontaneous
  Country: US (occurrence: None)
  Receive Date: 20130305
  Receipt Date: 20130305
  Transmission Date: 20140127
  Serious: Yes (Hospitalization)
  Sender: FDA-Public Use
  Company Number: 163-21880-12061020

PATIENT
  Age: 64 Year
  Sex: Female

DRUGS (5)
  1. REVLIMID [Suspect]
     Indication: PLASMA CELL MYELOMA
     Dosage: 1 IN 1 D
     Route: 048
     Dates: start: 200811
  2. PRNICILLIN [Concomitant]
  3. SEPTRA DS (BACTRIM) [Concomitant]
  4. CLINDAMYCIN (CLINDAMYCIN) [Concomitant]
  5. CYTOXAN (CYCLOPHOSPHAMIDE) [Concomitant]

REACTIONS (1)
  - Plasma cell myeloma [None]
